FAERS Safety Report 24348273 (Version 1)
Quarter: 2024Q3

REPORT INFORMATION
  Report Type: Spontaneous
  Country: US (occurrence: US)
  Receive Date: 20240923
  Receipt Date: 20240923
  Transmission Date: 20241016
  Serious: Yes (Other)
  Sender: NOVO NORDISK
  Company Number: US-NOVOPROD-1284419

PATIENT
  Sex: Female

DRUGS (1)
  1. OZEMPIC [Suspect]
     Active Substance: SEMAGLUTIDE
     Indication: Type 2 diabetes mellitus
     Dosage: 0.5 MG
     Route: 058

REACTIONS (7)
  - Road traffic accident [Unknown]
  - Neck pain [Unknown]
  - Headache [Unknown]
  - Vision blurred [Unknown]
  - Fear of injection [Unknown]
  - Injection site pain [Unknown]
  - Wrong technique in product usage process [Unknown]
